FAERS Safety Report 5848595-5 (Version None)
Quarter: 2008Q3

REPORT INFORMATION
  Report Type: 
  Country: None (occurrence: None)
  Receive Date: 20080814
  Receipt Date: 20080815
  Transmission Date: 20090109
  Serious: Yes (Life-Threatening, Hospitalization)
  Sender: FDA-Public Use
  Company Number: 91549

PATIENT
  Age: 41 Year
  Sex: Female

DRUGS (1)
  1. ACETAMINOPHEN EXTENDED RELEASE TABLETS/ 650 MG/ PERRIGO [Suspect]
     Dosage: ORAL
     Route: 048

REACTIONS (18)
  - ABDOMINAL PAIN UPPER [None]
  - AGITATION [None]
  - ALCOHOLISM [None]
  - BRAIN OEDEMA [None]
  - CHRONIC HEPATIC FAILURE [None]
  - CONVULSION [None]
  - DELIRIUM [None]
  - HEPATIC ENCEPHALOPATHY [None]
  - INTERNATIONAL NORMALISED RATIO INCREASED [None]
  - LACTIC ACIDOSIS [None]
  - METABOLIC ENCEPHALOPATHY [None]
  - NAUSEA [None]
  - OCULAR ICTERUS [None]
  - OLIGURIA [None]
  - OVERDOSE [None]
  - RESPIRATORY DISTRESS [None]
  - UROSEPSIS [None]
  - VOMITING [None]
